FAERS Safety Report 9330306 (Version 1)
Quarter: 2013Q2

REPORT INFORMATION
  Report Type: Spontaneous
  Country: US (occurrence: US)
  Receive Date: 20130605
  Receipt Date: 20130605
  Transmission Date: 20140414
  Serious: Yes (Death)
  Sender: FDA-Public Use
  Company Number: US-AMGEN-USASP2013039121

PATIENT
  Age: 69 Year
  Sex: Female

DRUGS (12)
  1. ENBREL [Suspect]
     Indication: PRODUCT USED FOR UNKNOWN INDICATION
     Dosage: 50 MG, QWK
     Route: 058
  2. METOPROLOL [Concomitant]
     Dosage: 50 MG,  ER UNK
  3. LASIX                              /00032601/ [Concomitant]
     Dosage: 20 MG, UNK
  4. CYMBALTA [Concomitant]
     Dosage: 60 MG, UNK
  5. PREDNISONE [Concomitant]
     Dosage: 5 MG, UNK
  6. ULTRAM                             /00599202/ [Concomitant]
     Dosage: 50 MG, UNK
  7. VITAMIN B-1 [Concomitant]
     Dosage: 100 MG, UNK
  8. CALCIUM [Concomitant]
     Dosage: 500 UNK, UNK
  9. VITAMINS                           /00067501/ [Concomitant]
     Dosage: UNK
  10. ARAVA [Concomitant]
     Dosage: 10 MG, UNK
  11. ENTOCORT EC [Concomitant]
     Dosage: 3 MG/24 HR
  12. CHLORTAN [Concomitant]
     Dosage: UNK

REACTIONS (1)
  - Death [Fatal]
